FAERS Safety Report 8206226-3 (Version None)
Quarter: 2012Q1

REPORT INFORMATION
  Report Type: 
  Country: None (occurrence: None)
  Receive Date: 20120313
  Receipt Date: 20120305
  Transmission Date: 20120608
  Serious: Yes (Other)
  Sender: FDA-Public Use
  Company Number: PHHY2012JP020158

PATIENT
  Age: 19 Year
  Sex: Female

DRUGS (1)
  1. CARBAMAZEPINE [Suspect]
     Indication: EPILEPSY
     Route: 048

REACTIONS (3)
  - PROTEIN-LOSING GASTROENTEROPATHY [None]
  - GENERALISED ERYTHEMA [None]
  - PYREXIA [None]
